FAERS Safety Report 19397640 (Version 2)
Quarter: 2021Q2

REPORT INFORMATION
  Report Type: Report from Study
  Country: JP (occurrence: JP)
  Receive Date: 20210609
  Receipt Date: 20210623
  Transmission Date: 20210717
  Serious: Yes (Death)
  Sender: FDA-Public Use
  Company Number: JP-BAUSCH-BL-2021-019895

PATIENT
  Age: 75 Year
  Sex: Female
  Weight: 40 kg

DRUGS (16)
  1. CHOREAZINE [Suspect]
     Active Substance: TETRABENAZINE
     Route: 065
     Dates: start: 20141029, end: 20150303
  2. CHOREAZINE [Suspect]
     Active Substance: TETRABENAZINE
     Route: 065
     Dates: start: 20140917, end: 20140923
  3. CHOREAZINE [Suspect]
     Active Substance: TETRABENAZINE
     Route: 065
     Dates: start: 20141001, end: 20141028
  4. AKINETON [Concomitant]
     Active Substance: BIPERIDEN HYDROCHLORIDE
     Route: 065
     Dates: start: 20150619, end: 20160316
  5. CHOREAZINE [Suspect]
     Active Substance: TETRABENAZINE
     Route: 065
     Dates: start: 20150304
  6. AKINETON [Concomitant]
     Active Substance: BIPERIDEN HYDROCHLORIDE
     Indication: PRODUCT USED FOR UNKNOWN INDICATION
     Route: 065
     Dates: start: 20070629, end: 20150618
  7. CHOREAZINE [Suspect]
     Active Substance: TETRABENAZINE
     Indication: HUNTINGTON^S DISEASE
     Route: 065
     Dates: start: 20140910, end: 20140916
  8. SERENACE [Concomitant]
     Active Substance: HALOPERIDOL
     Indication: PRODUCT USED FOR UNKNOWN INDICATION
     Route: 065
     Dates: start: 20070629, end: 20150618
  9. SERENACE [Concomitant]
     Active Substance: HALOPERIDOL
     Route: 065
     Dates: start: 20150619, end: 20160316
  10. AKINETON [Concomitant]
     Active Substance: BIPERIDEN HYDROCHLORIDE
     Route: 065
     Dates: start: 20160317
  11. ROHYPNOL [Concomitant]
     Active Substance: FLUNITRAZEPAM
     Indication: PRODUCT USED FOR UNKNOWN INDICATION
     Route: 065
     Dates: start: 20070629
  12. MAGMITT [Concomitant]
     Active Substance: MAGNESIUM OXIDE
     Indication: PRODUCT USED FOR UNKNOWN INDICATION
     Route: 065
     Dates: start: 20070629
  13. GASTER [Concomitant]
     Active Substance: FAMOTIDINE
     Indication: PRODUCT USED FOR UNKNOWN INDICATION
     Route: 065
     Dates: start: 20091210
  14. SEROQUEL [Concomitant]
     Active Substance: QUETIAPINE FUMARATE
     Indication: PRODUCT USED FOR UNKNOWN INDICATION
     Route: 065
     Dates: start: 20070629
  15. CHOREAZINE [Suspect]
     Active Substance: TETRABENAZINE
     Route: 065
     Dates: start: 20140924, end: 20190930
  16. SERENACE [Concomitant]
     Active Substance: HALOPERIDOL
     Route: 065
     Dates: start: 20160317

REACTIONS (1)
  - Pneumonia [Fatal]
